FAERS Safety Report 8402081-7 (Version None)
Quarter: 2012Q2

REPORT INFORMATION
  Report Type: 
  Country: None (occurrence: None)
  Receive Date: 20120601
  Receipt Date: 20120529
  Transmission Date: 20120825
  Serious: Yes (Death, Hospitalization, Other)
  Sender: FDA-Public Use
  Company Number: PHHY2012FR045770

PATIENT
  Age: 77 Year
  Sex: Male

DRUGS (1)
  1. METHYLPREDNISOLONE [Suspect]
     Indication: CHRONIC LYMPHOCYTIC LEUKAEMIA
     Dosage: 80 MG, QD

REACTIONS (21)
  - AFFECT LABILITY [None]
  - HALLUCINATION, VISUAL [None]
  - DISSOCIATIVE DISORDER [None]
  - SUICIDAL IDEATION [None]
  - PNEUMONIA [None]
  - ACUTE PSYCHOSIS [None]
  - RESPIRATORY FAILURE [None]
  - DISORIENTATION [None]
  - ANXIETY [None]
  - FEELING ABNORMAL [None]
  - HYPONATRAEMIA [None]
  - EUPHORIC MOOD [None]
  - ABNORMAL BEHAVIOUR [None]
  - VIOLENCE-RELATED SYMPTOM [None]
  - MAJOR DEPRESSION [None]
  - HOMICIDE [None]
  - CONFUSIONAL STATE [None]
  - NERVOUSNESS [None]
  - AMNESIA [None]
  - PULMONARY EMBOLISM [None]
  - DELIRIUM [None]
